FAERS Safety Report 14851463 (Version 3)
Quarter: 2018Q4

REPORT INFORMATION
  Report Type: Report from Study
  Country: None (occurrence: AR)
  Receive Date: 20180507
  Receipt Date: 20181115
  Transmission Date: 20190204
  Serious: Yes (Other)
  Sender: FDA-Public Use
  Company Number: AR-ABBVIE-18K-007-2346351-00

PATIENT
  Age: 25 Year
  Sex: Female

DRUGS (1)
  1. HUMIRA [Suspect]
     Active Substance: ADALIMUMAB
     Indication: UVEITIS
     Route: 058
     Dates: start: 20171207

REACTIONS (3)
  - Cataract [Recovered/Resolved]
  - Eye disorder [Recovering/Resolving]
  - Ocular neoplasm [Unknown]

NARRATIVE: CASE EVENT DATE: 20180915
